FAERS Safety Report 22257787 (Version 1)
Quarter: 2023Q2

REPORT INFORMATION
  Report Type: Spontaneous
  Country: CA (occurrence: None)
  Receive Date: 20230427
  Receipt Date: 20230427
  Transmission Date: 20230721
  Serious: Yes (Other)
  Sender: FDA-Public Use
  Company Number: CA-ROCHE-3334618

PATIENT
  Age: 65 Year
  Sex: Male

DRUGS (5)
  1. HERCEPTIN [Suspect]
     Active Substance: TRASTUZUMAB
     Indication: Oesophageal adenocarcinoma
     Route: 065
     Dates: start: 202204
  2. GLEEVEC [Concomitant]
     Active Substance: IMATINIB MESYLATE
  3. LAMOTRIGINE [Concomitant]
     Active Substance: LAMOTRIGINE
  4. IMATINIB [Concomitant]
     Active Substance: IMATINIB
  5. BROMOCRIPTINE [Concomitant]
     Active Substance: BROMOCRIPTINE

REACTIONS (26)
  - Nodule [Unknown]
  - Prostate examination abnormal [Unknown]
  - Metastases to spine [Unknown]
  - Metastases to lymph nodes [Unknown]
  - Creatinine urine increased [Unknown]
  - Protein urine present [Unknown]
  - Carbohydrate antigen 19-9 increased [Unknown]
  - Carcinoembryonic antigen increased [Unknown]
  - White blood cell count decreased [Unknown]
  - Red blood cell count decreased [Unknown]
  - Haemoglobin decreased [Unknown]
  - Haematocrit decreased [Unknown]
  - Platelet count decreased [Unknown]
  - Lymphocyte count decreased [Unknown]
  - Mean cell volume increased [Unknown]
  - Gastrooesophageal cancer [Unknown]
  - Metastases to lymph nodes [Unknown]
  - Abdominal pain upper [Unknown]
  - Constipation [Unknown]
  - Oesophagitis [Unknown]
  - Oesophageal carcinoma [Unknown]
  - Barrett^s oesophagus [Unknown]
  - Adenocarcinoma [Unknown]
  - Lymphadenopathy [Unknown]
  - Neoplasm [Unknown]
  - Drug ineffective [Unknown]

NARRATIVE: CASE EVENT DATE: 20221001
